FAERS Safety Report 14498354 (Version 1)
Quarter: 2018Q1

REPORT INFORMATION
  Report Type: Spontaneous
  Country: US (occurrence: US)
  Receive Date: 20180207
  Receipt Date: 20180207
  Transmission Date: 20180509
  Serious: Yes (Hospitalization, Other)
  Sender: FDA-Public Use
  Company Number: US-PROCTER+GAMBLE-GS18014424

PATIENT
  Age: 39 Year
  Sex: Female

DRUGS (5)
  1. OXYCODONE [Suspect]
     Active Substance: OXYCODONE
     Indication: BACK PAIN
     Dosage: 120MG
     Route: 048
  2. DIPHENHYDRAMINE HCL [Suspect]
     Active Substance: DIPHENHYDRAMINE HYDROCHLORIDE
     Indication: BACK PAIN
     Dosage: A COUPLE OF PILLS
     Route: 048
  3. LORAZEPAM. [Suspect]
     Active Substance: LORAZEPAM
     Indication: BACK PAIN
     Dosage: 0.5 MILLIGRAM
     Route: 048
  4. GLASS OF WINE [Suspect]
     Active Substance: WINE
     Route: 048
  5. ALPRAZOLAM. [Suspect]
     Active Substance: ALPRAZOLAM
     Indication: BACK PAIN
     Dosage: 1 MG
     Route: 048

REACTIONS (27)
  - Unresponsive to stimuli [Recovered/Resolved]
  - Soft tissue swelling [Recovered/Resolved]
  - Peripheral swelling [Recovered/Resolved]
  - Tenderness [Recovered/Resolved]
  - Muscular weakness [Recovered/Resolved]
  - Scar [Not Recovered/Not Resolved]
  - Blood creatine phosphokinase increased [Recovering/Resolving]
  - Hand deformity [Recovered/Resolved]
  - Alanine aminotransferase increased [Unknown]
  - White blood cell count increased [Unknown]
  - Granulocytes abnormal [Unknown]
  - Labelled drug-drug interaction medication error [Unknown]
  - Leukocytosis [Unknown]
  - Sensory loss [Recovered/Resolved]
  - Labelled drug-food interaction medication error [Unknown]
  - Extra dose administered [None]
  - Loss of consciousness [Recovered/Resolved]
  - Somnolence [Unknown]
  - Neutrophil count increased [Unknown]
  - Muscle necrosis [Recovered/Resolved]
  - Compartment syndrome [Recovered/Resolved]
  - Pain in extremity [Not Recovered/Not Resolved]
  - Erythema [Recovered/Resolved]
  - Tendon necrosis [Recovered/Resolved]
  - Lethargy [Unknown]
  - Aspartate aminotransferase increased [Unknown]
  - Overdose [Unknown]
